FAERS Safety Report 5417179-5 (Version None)
Quarter: 2007Q3

REPORT INFORMATION
  Report Type: 
  Country: None (occurrence: None)
  Receive Date: 20070816
  Receipt Date: 20070814
  Transmission Date: 20080115
  Serious: No
  Sender: FDA-Public Use
  Company Number: US-BOEHRINGER INGELHEIM PHARMACEUTICALS, INC.-2007-BP-07168BP

PATIENT
  Age: 69 Year
  Sex: Female

DRUGS (6)
  1. ATROVENT HFA [Suspect]
     Indication: ALPHA-1 ANTI-TRYPSIN DEFICIENCY
     Route: 055
  2. FOSAMAX [Concomitant]
  3. HYDROXYCHLOROQUINE SULFATE [Concomitant]
  4. EFFEXOR [Concomitant]
  5. SEREVENT [Concomitant]
  6. ALBUTEROL [Concomitant]

REACTIONS (2)
  - DIZZINESS [None]
  - THROAT IRRITATION [None]
